FAERS Safety Report 13446884 (Version 2)
Quarter: 2017Q2

REPORT INFORMATION
  Report Type: Spontaneous
  Country: US (occurrence: US)
  Receive Date: 20170417
  Receipt Date: 20170508
  Transmission Date: 20170830
  Serious: No
  Sender: FDA-Public Use
  Company Number: US-PFIZER INC-2017156980

PATIENT
  Sex: Female

DRUGS (1)
  1. XELJANZ XR [Suspect]
     Active Substance: TOFACITINIB CITRATE
     Indication: RHEUMATOID ARTHRITIS
     Dosage: 11 MG, UNK

REACTIONS (7)
  - Weight increased [Unknown]
  - Peripheral swelling [Unknown]
  - Fatigue [Unknown]
  - Blood pressure increased [Unknown]
  - Swelling [Unknown]
  - Arthralgia [Unknown]
  - Tenderness [Unknown]
